FAERS Safety Report 7949906-7 (Version None)
Quarter: 2011Q4

REPORT INFORMATION
  Report Type: 
  Country: None (occurrence: None)
  Receive Date: 20111130
  Receipt Date: 20111121
  Transmission Date: 20120403
  Serious: Yes (Other)
  Sender: FDA-Public Use
  Company Number: GR-TEVA-310787ISR

PATIENT
  Age: 11 Year
  Sex: Male

DRUGS (14)
  1. DEXAMETHASONE [Suspect]
     Indication: HODGKIN'S DISEASE RECURRENT
     Dates: start: 20020201
  2. IFOSFAMIDE [Suspect]
     Indication: HODGKIN'S DISEASE RECURRENT
     Dates: start: 20020201
  3. CHLORMETHINE [Suspect]
     Indication: HODGKIN'S DISEASE
     Dates: start: 20000101, end: 20010101
  4. VINCRISTINE [Suspect]
     Indication: HODGKIN'S DISEASE
     Dates: start: 20000101
  5. PROCARBAZINE HYDROCHLORIDE [Suspect]
     Indication: HODGKIN'S DISEASE
     Dates: start: 20000101
  6. DOXORUBICIN HCL [Suspect]
     Indication: HODGKIN'S DISEASE
     Dates: start: 20000101
  7. ETOPOSIDE [Suspect]
     Indication: HODGKIN'S DISEASE RECURRENT
     Dates: start: 20020201
  8. CARMUSTINE [Suspect]
     Indication: HODGKIN'S DISEASE RECURRENT
     Dates: start: 20020201
  9. CISPLATIN [Suspect]
     Dates: start: 20020201
  10. CYCLOPHOSPHAMIDE [Suspect]
     Indication: HODGKIN'S DISEASE
     Dates: start: 20000101
  11. PREDNISONE TAB [Suspect]
     Indication: HODGKIN'S DISEASE
     Dates: start: 20000101
  12. BLEOMYCIN SULFATE [Suspect]
     Indication: HODGKIN'S DISEASE
     Dates: start: 20000101
  13. VINBLASTINE SULFATE [Suspect]
     Indication: HODGKIN'S DISEASE
     Dates: start: 20000101
  14. DACARBAZINE [Suspect]
     Indication: HODGKIN'S DISEASE
     Dates: start: 20000101

REACTIONS (1)
  - MYELODYSPLASTIC SYNDROME [None]
